FAERS Safety Report 10164591 (Version 1)
Quarter: 2014Q2

REPORT INFORMATION
  Report Type: Spontaneous
  Country: US (occurrence: US)
  Receive Date: 20140510
  Receipt Date: 20140510
  Transmission Date: 20141212
  Serious: No
  Sender: FDA-Public Use
  Company Number: US-BRISTOL-MYERS SQUIBB COMPANY-19587955

PATIENT
  Sex: Female

DRUGS (2)
  1. BYDUREON  2MG SUSPENSION [Suspect]
     Route: 058
     Dates: start: 20130907, end: 20130914
  2. AMARYL [Concomitant]

REACTIONS (5)
  - Nausea [Unknown]
  - Vomiting [Unknown]
  - Decreased appetite [Unknown]
  - Weight decreased [Unknown]
  - Injection site swelling [Unknown]
